FAERS Safety Report 12223026 (Version 1)
Quarter: 2016Q1

REPORT INFORMATION
  Report Type: Spontaneous
  Country: US (occurrence: US)
  Receive Date: 20160330
  Receipt Date: 20160330
  Transmission Date: 20160526
  Serious: No
  Sender: FDA-Public Use
  Company Number: US-PERRIGO-15US012974

PATIENT
  Age: 77 Year
  Sex: Female
  Weight: 56.69 kg

DRUGS (2)
  1. ACETAMINOPHEN. [Suspect]
     Active Substance: ACETAMINOPHEN
     Dosage: 1950 MG, SINGLE
     Route: 048
     Dates: start: 20151210, end: 20151210
  2. ACETAMINOPHEN. [Suspect]
     Active Substance: ACETAMINOPHEN
     Indication: ARTHRALGIA
     Dosage: 1950 MG, BID
     Route: 048
     Dates: start: 20151209, end: 20151209

REACTIONS (2)
  - No adverse event [Unknown]
  - Incorrect dose administered [Recovered/Resolved]

NARRATIVE: CASE EVENT DATE: 20151209
